FAERS Safety Report 22520851 (Version 1)
Quarter: 2023Q2

REPORT INFORMATION
  Report Type: Spontaneous
  Country: US (occurrence: None)
  Receive Date: 20230602
  Receipt Date: 20230602
  Transmission Date: 20230721
  Serious: No
  Sender: FDA-Public Use
  Company Number: None

PATIENT
  Age: 80 Year
  Sex: Female

DRUGS (1)
  1. KESIMPTA [Suspect]
     Active Substance: OFATUMUMAB
     Indication: Multiple sclerosis
     Route: 058
     Dates: start: 202212

REACTIONS (6)
  - Fatigue [None]
  - Infection [None]
  - Cough [None]
  - Oropharyngeal pain [None]
  - Chest discomfort [None]
  - Pain in jaw [None]

NARRATIVE: CASE EVENT DATE: 20221216
